FAERS Safety Report 5904127-4 (Version None)
Quarter: 2008Q3

REPORT INFORMATION
  Report Type: 
  Country: None (occurrence: None)
  Receive Date: 20080919
  Receipt Date: 20080529
  Transmission Date: 20090109
  Serious: Yes (Other)
  Sender: FDA-Public Use
  Company Number: US-WYE-H04341508

PATIENT
  Age: 44 Year
  Sex: Male
  Weight: 90.8 kg

DRUGS (1)
  1. PRISTIQ [Suspect]
     Indication: MAJOR DEPRESSION
     Dosage: 50 MG 1X PER 1 DAY,ORAL
     Route: 048
     Dates: start: 20080519, end: 20080523

REACTIONS (2)
  - ABNORMAL BEHAVIOUR [None]
  - ANGER [None]
